FAERS Safety Report 13165246 (Version 2)
Quarter: 2017Q2

REPORT INFORMATION
  Report Type: Report from Study
  Country: JP (occurrence: JP)
  Receive Date: 20170131
  Receipt Date: 20170417
  Transmission Date: 20170830
  Serious: Yes (Other)
  Sender: FDA-Public Use
  Company Number: JP-ALEXION PHARMACEUTICALS INC-A201505219

PATIENT
  Age: 42 Year
  Sex: Female
  Weight: 47 kg

DRUGS (52)
  1. METOCLOPRAMIDE. [Concomitant]
     Active Substance: METOCLOPRAMIDE
     Dosage: 10 MG, QD
     Route: 042
     Dates: start: 20140915, end: 20140915
  2. NIFEDIPINE. [Concomitant]
     Active Substance: NIFEDIPINE
     Indication: HYPERTENSION
     Dosage: 20 MG, QD
     Route: 048
     Dates: start: 20140910, end: 20140924
  3. SOL-MELCORT [Concomitant]
     Active Substance: METHYLPREDNISOLONE SODIUM SUCCINATE
     Indication: PROPHYLAXIS AGAINST TRANSPLANT REJECTION
     Dosage: 32-500 MG, QD
     Route: 042
     Dates: start: 20140905, end: 20140908
  4. CEFAZOLIN [Concomitant]
     Active Substance: CEFAZOLIN
     Indication: ANTIBIOTIC PROPHYLAXIS
     Dosage: 1 G, QD
     Route: 041
     Dates: start: 20140905, end: 20140905
  5. ATARAX-P                           /00058402/ [Concomitant]
     Active Substance: HYDROXYZINE HYDROCHLORIDE
     Dosage: 50 MG, QD
     Route: 041
     Dates: start: 20140920, end: 20140920
  6. PENTAGIN                           /00052103/ [Concomitant]
     Active Substance: PENTAZOCINE HYDROCHLORIDE
     Indication: PERIOPERATIVE ANALGESIA
     Dosage: 15 MG, QD
     Route: 030
     Dates: start: 20140912, end: 20140913
  7. SEPAMIT-R [Concomitant]
     Active Substance: NIFEDIPINE
     Indication: HYPERTENSION
     Dosage: 10 MG, BID
     Route: 048
     Dates: start: 20140907, end: 20140908
  8. ALFACALCIDOL [Concomitant]
     Active Substance: ALFACALCIDOL
     Dosage: 0.25 ?G, BID
     Route: 048
     Dates: start: 20140914
  9. CALCIUM LACTATE [Concomitant]
     Active Substance: CALCIUM LACTATE
     Indication: HYPOCALCIURIA
     Dosage: 1 G, TID
     Route: 048
     Dates: start: 20140909, end: 20140918
  10. CALCIUM LACTATE [Concomitant]
     Active Substance: CALCIUM LACTATE
     Dosage: 1 G, 5 TIMES/ DAY
     Route: 065
     Dates: start: 20140919
  11. PURSENNID                          /00142207/ [Concomitant]
     Active Substance: SENNOSIDES A AND B
     Dosage: 24 MG, QD
     Route: 048
     Dates: start: 20140903, end: 20140903
  12. POLARAMINE [Concomitant]
     Active Substance: DEXCHLORPHENIRAMINE MALEATE
     Indication: ALLERGY PROPHYLAXIS
     Dosage: 5 MG, UNK
     Route: 041
     Dates: start: 20140905, end: 20140908
  13. OMEPRAZOLE. [Concomitant]
     Active Substance: OMEPRAZOLE
     Indication: PROPHYLAXIS AGAINST GASTROINTESTINAL ULCER
     Dosage: 20 MG, QD
     Route: 041
     Dates: start: 20140906, end: 20140908
  14. VENOGLOBULIN IH [Concomitant]
     Active Substance: HUMAN IMMUNOGLOBULIN G
     Indication: TRANSPLANT REJECTION
     Dosage: 5 G, QD
     Route: 041
     Dates: start: 20140906, end: 20140910
  15. ATARAX-P                           /00058402/ [Concomitant]
     Active Substance: HYDROXYZINE HYDROCHLORIDE
     Indication: ALLERGY PROPHYLAXIS
     Dosage: 25 MG, QD
     Route: 041
     Dates: start: 20140906, end: 20140908
  16. HANP [Concomitant]
     Active Substance: CARPERITIDE
     Indication: RENAL TRANSPLANT
     Dosage: 2000 ?G, QD
     Route: 042
     Dates: start: 20140908, end: 20140909
  17. SPANIDIN [Concomitant]
     Active Substance: GUSPERIMUS TRIHYDROCHLORIDE
     Indication: PROPHYLAXIS AGAINST TRANSPLANT REJECTION
     Dosage: 200 MG, QD
     Route: 041
     Dates: start: 20140919, end: 20140925
  18. MEDROL [Concomitant]
     Active Substance: METHYLPREDNISOLONE
     Indication: PROPHYLAXIS AGAINST TRANSPLANT REJECTION
     Dosage: 32-4 MG, QD
     Route: 065
     Dates: start: 20140909
  19. SOLIRIS [Suspect]
     Active Substance: ECULIZUMAB
     Indication: HAEMOLYTIC URAEMIC SYNDROME
     Dosage: 900 MG, Q2W
     Route: 042
     Dates: start: 20140911, end: 20140926
  20. PURSENNID                          /00142207/ [Concomitant]
     Active Substance: SENNOSIDES A AND B
     Indication: CONSTIPATION
     Dosage: 12 MG, QD
     Route: 048
     Dates: start: 20140203
  21. PENTAGIN                           /00052103/ [Concomitant]
     Active Substance: PENTAZOCINE HYDROCHLORIDE
     Dosage: 15-75 MG, QD
     Route: 030
     Dates: start: 20140920, end: 20140923
  22. LANSOPRAZOLE. [Concomitant]
     Active Substance: LANSOPRAZOLE
     Indication: PROPHYLAXIS AGAINST GASTROINTESTINAL ULCER
     Dosage: 15 MG, QD
     Route: 048
     Dates: start: 20140909
  23. ACETAMINOPHEN. [Concomitant]
     Active Substance: ACETAMINOPHEN
     Indication: PERIOPERATIVE ANALGESIA
     Dosage: 400 MG, PRN
     Route: 048
     Dates: start: 20140908, end: 20140924
  24. MYCOPHENOLATE MOFETIL. [Concomitant]
     Active Substance: MYCOPHENOLATE MOFETIL
     Indication: PROPHYLAXIS AGAINST TRANSPLANT REJECTION
     Dosage: 750-1000 MG, QD
     Route: 048
     Dates: start: 20140821, end: 20140916
  25. CALCICOL [Concomitant]
     Active Substance: CALCIUM GLUCONATE
     Indication: HYPOCALCAEMIA
     Dosage: UNK
     Route: 042
     Dates: start: 20140905, end: 20140905
  26. CHICHINA [Concomitant]
     Indication: HAEMORRHAGE PROPHYLAXIS
     Dosage: 100 MG, QD
     Route: 041
     Dates: start: 20140905, end: 20140905
  27. METOCLOPRAMIDE. [Concomitant]
     Active Substance: METOCLOPRAMIDE
     Indication: NAUSEA
     Dosage: 20 MG, QD
     Route: 042
     Dates: start: 20140906, end: 20140906
  28. ALFACALCIDOL [Concomitant]
     Active Substance: ALFACALCIDOL
     Indication: RENAL FAILURE
     Dosage: 0.25 ?G, QD
     Route: 048
     Dates: start: 20140909, end: 20140913
  29. HACHIAZULE                         /00317302/ [Concomitant]
     Indication: STOMATITIS
     Dosage: UNK UNK, PRN
     Route: 049
     Dates: start: 20140909
  30. THYRADIN S [Concomitant]
     Active Substance: LEVOTHYROXINE SODIUM
     Indication: HYPOTHYROIDISM
     Dosage: 50-100 ?G, QD
     Route: 048
     Dates: start: 20140213
  31. CELLCEPT [Suspect]
     Active Substance: MYCOPHENOLATE MOFETIL\MYCOPHENOLATE MOFETIL HYDROCHLORIDE
     Indication: PROPHYLAXIS AGAINST TRANSPLANT REJECTION
     Dosage: 1000-250MG, QD
     Route: 048
     Dates: start: 20140916
  32. RECOMODULIN [Concomitant]
     Active Substance: THROMBOMODULIN ALFA
     Dosage: 6000 IU, QD
     Route: 041
     Dates: start: 20140915, end: 20140916
  33. SIMULECT [Concomitant]
     Active Substance: BASILIXIMAB
     Indication: PROPHYLAXIS AGAINST TRANSPLANT REJECTION
     Dosage: 20 MG, QD
     Route: 042
     Dates: start: 20140908, end: 20140908
  34. VANCOMYCIN HYDROCHLORIDE. [Concomitant]
     Active Substance: VANCOMYCIN HYDROCHLORIDE
     Dosage: 1.5 G, QD
     Route: 041
     Dates: start: 20140913, end: 20140913
  35. PRECIPITATED CALCIUM CARBONATE [Concomitant]
     Active Substance: CALCIUM CARBONATE
     Indication: HYPOCALCIURIA
     Dosage: 500 MG, TID
     Route: 048
     Dates: start: 20140914, end: 20140917
  36. GRACEPTOR [Concomitant]
     Active Substance: TACROLIMUS
     Indication: PROPHYLAXIS AGAINST TRANSPLANT REJECTION
     Dosage: 6 MG, QD
     Route: 048
     Dates: start: 20140901, end: 20140906
  37. DICLOFENAC SODIUM. [Concomitant]
     Active Substance: DICLOFENAC SODIUM
     Indication: RENAL FAILURE
     Dosage: 50 MG, PRN
     Route: 054
     Dates: start: 20140903
  38. ZOLPIDEM TARTRATE. [Concomitant]
     Active Substance: ZOLPIDEM TARTRATE
     Indication: PRODUCT USED FOR UNKNOWN INDICATION
     Dosage: 5 MG, PRN
     Route: 048
     Dates: start: 20140903, end: 20140905
  39. HERBAL EXTRACT NOS [Concomitant]
     Active Substance: HERBALS
     Indication: PRODUCT USED FOR UNKNOWN INDICATION
     Dosage: 2.5 G, TID
     Route: 048
     Dates: start: 20140830, end: 20140904
  40. PURSENNID                          /00142207/ [Concomitant]
     Active Substance: SENNOSIDES A AND B
     Dosage: 24 MG, PRN
     Route: 048
     Dates: start: 20140903
  41. RECOMODULIN [Concomitant]
     Active Substance: THROMBOMODULIN ALFA
     Indication: DISSEMINATED INTRAVASCULAR COAGULATION
     Dosage: 6000 IU, QD
     Route: 041
     Dates: start: 20140907, end: 20140911
  42. PENTAGIN                           /00052103/ [Concomitant]
     Active Substance: PENTAZOCINE HYDROCHLORIDE
     Dosage: 15 MG, QD
     Route: 030
     Dates: start: 20140927, end: 20140927
  43. FENTANYL. [Concomitant]
     Active Substance: FENTANYL
     Indication: PERIOPERATIVE ANALGESIA
     Dosage: 0.4 MG, QD
     Route: 041
     Dates: start: 20140923, end: 20140924
  44. ACETAMINOPHEN. [Concomitant]
     Active Substance: ACETAMINOPHEN
     Dosage: 400 MG, TID
     Route: 048
     Dates: start: 20140925
  45. LECICARBON                         /00739901/ [Concomitant]
     Active Substance: LECITHIN\SODIUM BICARBONATE\SODIUM PHOSPHATE, MONOBASIC
     Indication: HYPOCALCAEMIA
     Dosage: 1 DF, PRN
     Route: 054
     Dates: start: 20140920
  46. ZOPICLONE [Concomitant]
     Active Substance: ZOPICLONE
     Indication: PRODUCT USED FOR UNKNOWN INDICATION
     Dosage: 7.5 MG, PRN
     Route: 048
     Dates: start: 20140903, end: 20140903
  47. FUROSEMIDE. [Concomitant]
     Active Substance: FUROSEMIDE
     Indication: RENAL TRANSPLANT
     Dosage: 28-80MG,QD
     Route: 048
     Dates: start: 20140208
  48. NICARDIPINE HYDROCHLORIDE. [Concomitant]
     Active Substance: NICARDIPINE HYDROCHLORIDE
     Indication: BLOOD PRESSURE MANAGEMENT
     Dosage: 50-70 MG, QD
     Route: 041
     Dates: start: 20140905, end: 20140908
  49. VANCOMYCIN HYDROCHLORIDE. [Concomitant]
     Active Substance: VANCOMYCIN HYDROCHLORIDE
     Indication: INFECTION
     Dosage: 1.5 G, QD
     Route: 041
     Dates: start: 20140910, end: 20140910
  50. DROLEPTAN [Concomitant]
     Active Substance: DROPERIDOL
     Indication: NAUSEA
     Dosage: 3.75 MG, QD
     Route: 042
     Dates: start: 20140923, end: 20140924
  51. NEORAL [Concomitant]
     Active Substance: CYCLOSPORINE
     Indication: PROPHYLAXIS AGAINST TRANSPLANT REJECTION
     Dosage: 75-100 MG, QD
     Route: 048
     Dates: start: 20140906
  52. KENALOG [Concomitant]
     Active Substance: TRIAMCINOLONE ACETONIDE
     Indication: STOMATITIS
     Dosage: UNK
     Route: 049
     Dates: start: 20140910

REACTIONS (3)
  - Bone marrow failure [Recovered/Resolved]
  - Urinary tract infection [Recovering/Resolving]
  - Salmonella bacteraemia [Recovering/Resolving]

NARRATIVE: CASE EVENT DATE: 20140927
